FAERS Safety Report 18695545 (Version 1)
Quarter: 2021Q1

REPORT INFORMATION
  Report Type: Spontaneous
  Country: US (occurrence: US)
  Receive Date: 20210104
  Receipt Date: 20210104
  Transmission Date: 20210419
  Serious: Yes (Hospitalization, Other)
  Sender: FDA-Public Use
  Company Number: None

PATIENT
  Age: 66 Year
  Sex: Male
  Weight: 85.6 kg

DRUGS (3)
  1. BARICITINIB. [Suspect]
     Active Substance: BARICITINIB
     Indication: COVID-19
     Route: 048
     Dates: start: 20201215, end: 20201223
  2. DEXAMETHASONE. [Concomitant]
     Active Substance: DEXAMETHASONE
     Dates: start: 20201214, end: 20201223
  3. REMDESIVIR. [Concomitant]
     Active Substance: REMDESIVIR
     Dates: start: 20201215, end: 20201219

REACTIONS (2)
  - Oxygen saturation decreased [None]
  - Hypoxia [None]

NARRATIVE: CASE EVENT DATE: 20210103
